FAERS Safety Report 17763505 (Version 1)
Quarter: 2020Q2

REPORT INFORMATION
  Report Type: Spontaneous
  Country: US (occurrence: US)
  Receive Date: 20200509
  Receipt Date: 20200509
  Transmission Date: 20200714
  Serious: Yes (Hospitalization)
  Sender: FDA-Public Use
  Company Number: US-ROCHE-2594158

PATIENT
  Sex: Male

DRUGS (1)
  1. ACTEMRA [Suspect]
     Active Substance: TOCILIZUMAB
     Indication: RHEUMATOID ARTHRITIS
     Dosage: ONGOING: YES
     Route: 065
     Dates: start: 20200408

REACTIONS (9)
  - Pain in extremity [Unknown]
  - Pain [Unknown]
  - Joint swelling [Unknown]
  - Erythema [Unknown]
  - Arthropathy [Unknown]
  - Hypoaesthesia [Unknown]
  - Arthralgia [Unknown]
  - Infection [Unknown]
  - Back pain [Unknown]
